FAERS Safety Report 9034646 (Version 3)
Quarter: 2013Q4

REPORT INFORMATION
  Report Type: Spontaneous
  Country: IT (occurrence: None)
  Receive Date: 20130118
  Receipt Date: 20131213
  Transmission Date: 20140711
  Serious: Yes (Death, Other)
  Sender: FDA-Public Use
  Company Number: AUR-APL-2013-00525

PATIENT
  Age: 48 Year
  Sex: Male
  Weight: 70 kg

DRUGS (12)
  1. METFORMIN (METFORMIN) [Suspect]
     Indication: TYPE 2 DIABETES MELLITUS
     Route: 048
     Dates: start: 20111007, end: 20121221
  2. PANTORC [Concomitant]
  3. CORLENTOR [Concomitant]
  4. ZYLORIC [Concomitant]
  5. NITROSYLON (GLYCERYL TRINITRATE) [Concomitant]
  6. UNIPRIL (ENALAPRIL MALEATE) [Concomitant]
  7. KCL RETARD (POTASSIUM CHLORIDE) [Concomitant]
  8. LASIX (FUROSEMIDE) [Concomitant]
  9. CARAVEL (CARVEDILOL) [Concomitant]
  10. KANRENOL (POTASSIUM CANRENOATE) [Concomitant]
  11. CARDIOSAPIRIN (ACETYLSALICYLIC ACID) [Concomitant]
  12. AMINOTROFIC [Concomitant]

REACTIONS (23)
  - Anuria [None]
  - Hypotension [None]
  - Intestinal ischaemia [None]
  - Blood potassium increased [None]
  - Blood creatinine increased [None]
  - Blood chloride decreased [None]
  - Ejection fraction decreased [None]
  - Hypoglycaemia [None]
  - Troponin increased [None]
  - Peripheral coldness [None]
  - Dyspnoea [None]
  - Tachycardia [None]
  - Agitation [None]
  - Tachypnoea [None]
  - Cold sweat [None]
  - Bradycardia [None]
  - Poor peripheral circulation [None]
  - Pupil fixed [None]
  - Ventricular fibrillation [None]
  - Intestinal ischaemia [None]
  - Hepatic ischaemia [None]
  - Renal ischaemia [None]
  - Gastroenteritis [None]
